FAERS Safety Report 18072024 (Version 2)
Quarter: 2020Q4

REPORT INFORMATION
  Report Type: Spontaneous
  Country: US (occurrence: US)
  Receive Date: 20200727
  Receipt Date: 20201211
  Transmission Date: 20210113
  Serious: No
  Sender: FDA-Public Use
  Company Number: US-PFIZER INC-2018061846

PATIENT
  Age: 48 Year
  Sex: Female
  Weight: 83.46 kg

DRUGS (3)
  1. ARTHROTEC [Concomitant]
     Active Substance: DICLOFENAC SODIUM\MISOPROSTOL
     Indication: ARTHRITIS
     Dosage: UNK, [DICLOFENAC SODIUM 75MG]/[MISOPROSTOL 200MCG]
  2. PREMARIN [Concomitant]
     Active Substance: ESTROGENS, CONJUGATED
     Dosage: 0.625 MG, UNK
  3. LYRICA [Suspect]
     Active Substance: PREGABALIN
     Indication: SCIATIC NERVE INJURY
     Dosage: 75 MG, 3X/DAY
     Route: 048
     Dates: start: 2016, end: 201909

REACTIONS (3)
  - Nasal congestion [Unknown]
  - Product dispensing error [Unknown]
  - Dyspnoea [Unknown]
